FAERS Safety Report 10730539 (Version 1)
Quarter: 2015Q1

REPORT INFORMATION
  Report Type: Spontaneous
  Country: JP (occurrence: JP)
  Receive Date: 20150122
  Receipt Date: 20150122
  Transmission Date: 20150721
  Serious: Yes (Other)
  Sender: FDA-Public Use
  Company Number: JP-ASTRAZENECA-2015SE05737

PATIENT
  Age: 59 Year
  Sex: Male

DRUGS (2)
  1. FIVE OTHER DRUGS [Suspect]
     Active Substance: UNSPECIFIED INGREDIENT
     Route: 065
  2. NEXIUM [Suspect]
     Active Substance: ESOMEPRAZOLE MAGNESIUM
     Dosage: DOSE UNKNOWN
     Route: 048
     Dates: start: 201312, end: 201401

REACTIONS (1)
  - Interstitial lung disease [Unknown]
